FAERS Safety Report 4566528-9 (Version None)
Quarter: 2005Q1

REPORT INFORMATION
  Report Type: 
  Country: None (occurrence: None)
  Receive Date: 20050126
  Receipt Date: 20050126
  Transmission Date: 20050727
  Serious: Yes (Life-Threatening, Hospitalization)
  Sender: FDA-Public Use
  Company Number: None

PATIENT
  Age: 49 Year
  Sex: Female
  Weight: 54.2 kg

DRUGS (6)
  1. MORPHINE SR   15MG   ROXANE [Suspect]
     Indication: PAIN
     Dosage: 15MG   TWO TIMES/DAY   ORAL
     Route: 048
     Dates: start: 20031005, end: 20031006
  2. OYSTER-SHELL CALCIUM [Concomitant]
  3. LORAZEPAM [Concomitant]
  4. DIPHENHYDRAMINE HCL [Concomitant]
  5. CYCLOBENZAPRINE [Concomitant]
  6. ACETAMINOPHEN [Concomitant]

REACTIONS (6)
  - AGITATION [None]
  - APNOEA [None]
  - CARDIO-RESPIRATORY ARREST [None]
  - COMA [None]
  - HYPOTENSION [None]
  - REFUSAL OF TREATMENT BY PATIENT [None]
